FAERS Safety Report 18536224 (Version 1)
Quarter: 2020Q4

REPORT INFORMATION
  Report Type: Spontaneous
  Country: DE (occurrence: DE)
  Receive Date: 20201124
  Receipt Date: 20201124
  Transmission Date: 20210114
  Serious: Yes (Other)
  Sender: FDA-Public Use
  Company Number: DE-ROCHE-2714635

PATIENT
  Age: 34 Year
  Sex: Female

DRUGS (5)
  1. OCREVUS [Suspect]
     Active Substance: OCRELIZUMAB
     Indication: RELAPSING MULTIPLE SCLEROSIS
     Route: 065
     Dates: start: 201910
  2. METOPROLOL. [Concomitant]
     Active Substance: METOPROLOL
     Indication: PROPHYLAXIS
     Dosage: 2-0-1,5
  3. OCREVUS [Suspect]
     Active Substance: OCRELIZUMAB
     Route: 065
     Dates: start: 202009
  4. OCREVUS [Suspect]
     Active Substance: OCRELIZUMAB
     Route: 065
     Dates: start: 202004
  5. METOPROLOL. [Concomitant]
     Active Substance: METOPROLOL
     Dosage: TWO TIMES 25 MG
     Dates: start: 202001

REACTIONS (5)
  - Multiple sclerosis relapse [Unknown]
  - B-lymphocyte count decreased [Unknown]
  - Drug hypersensitivity [Unknown]
  - T-cell depletion [Unknown]
  - Paraparesis [Unknown]

NARRATIVE: CASE EVENT DATE: 2020
